FAERS Safety Report 5613746-4 (Version None)
Quarter: 2008Q1

REPORT INFORMATION
  Report Type: 
  Country: None (occurrence: None)
  Receive Date: 20080130
  Receipt Date: 20080114
  Transmission Date: 20080703
  Serious: Yes (Death)
  Sender: FDA-Public Use
  Company Number: 2008S1000068

PATIENT
  Age: 65 Year
  Sex: Female

DRUGS (10)
  1. ROXICODONE [Suspect]
     Dosage: ; PO
     Route: 048
     Dates: end: 20060101
  2. AMITRIPTYLINE HCL [Suspect]
     Dosage: ; PO
     Route: 048
     Dates: end: 20060101
  3. CALCIUM ANTAGONIST [Suspect]
     Dosage: ; PO
     Route: 048
     Dates: end: 20060101
  4. ANTIPSYCHOTIC, ATYPICAL [Suspect]
     Dosage: ; PO
     Route: 048
     Dates: end: 20060101
  5. BUSPIRONE HCL [Suspect]
     Dosage: ; PO
     Route: 048
     Dates: end: 20060101
  6. COX-2 INHIBITOR [Suspect]
     Dosage: ; PO
     Route: 048
     Dates: end: 20060101
  7. HYDROCHLOROTHIAZIDE [Suspect]
     Dosage: ; PO
     Route: 048
     Dates: end: 20060101
  8. ANTIHYPERLIPIDEMIC [Suspect]
     Dosage: ; PO
     Route: 048
     Dates: end: 20060101
  9. ANTIHISTAMINE [Suspect]
     Dosage: ; PO
     Route: 048
     Dates: end: 20060101
  10. CLONAZEPAM [Suspect]
     Dosage: ; PO
     Route: 048
     Dates: end: 20060101

REACTIONS (1)
  - COMPLETED SUICIDE [None]
